FAERS Safety Report 18175603 (Version 1)
Quarter: 2020Q3

REPORT INFORMATION
  Report Type: Spontaneous
  Country: JP (occurrence: JP)
  Receive Date: 20200820
  Receipt Date: 20200820
  Transmission Date: 20201103
  Serious: Yes (Other)
  Sender: FDA-Public Use
  Company Number: JP-TEVA-2020-JP-1245032

PATIENT
  Age: 71 Year
  Sex: Female
  Weight: 70 kg

DRUGS (5)
  1. AZILECT [Suspect]
     Active Substance: RASAGILINE MESYLATE
     Indication: PARKINSON^S DISEASE
     Dosage: 1 MILLIGRAM DAILY;
     Route: 048
     Dates: start: 20191126, end: 20200303
  2. ARTANE [Concomitant]
     Active Substance: TRIHEXYPHENIDYL HYDROCHLORIDE
     Dates: start: 20160119
  3. MENESIT [Concomitant]
     Active Substance: CARBIDOPA\LEVODOPA
     Dates: start: 20160119
  4. CERCINE [Concomitant]
     Active Substance: DIAZEPAM
     Dates: start: 20160119
  5. NOURIAST [Concomitant]
     Active Substance: ISTRADEFYLLINE
     Dates: start: 20160301

REACTIONS (4)
  - Syncope [Recovered/Resolved]
  - Fall [Recovered/Resolved]
  - Orthostatic hypotension [Recovered/Resolved]
  - Head injury [Unknown]

NARRATIVE: CASE EVENT DATE: 20200218
